FAERS Safety Report 9337445 (Version 3)
Quarter: 2014Q3

REPORT INFORMATION
  Report Type: Spontaneous
  Country: US (occurrence: US)
  Receive Date: 20130607
  Receipt Date: 20140715
  Transmission Date: 20150326
  Serious: Yes (Death)
  Sender: FDA-Public Use
  Company Number: US-BRISTOL-MYERS SQUIBB COMPANY-18989798

PATIENT
  Age: 52 Year
  Sex: Male

DRUGS (6)
  1. VALIUM [Concomitant]
     Active Substance: DIAZEPAM
     Indication: SINUS DISORDER
     Dosage: TABS?1DF=1 TABS
     Route: 048
  2. NIRAVAM [Concomitant]
     Active Substance: ALPRAZOLAM
     Indication: SINUS DISORDER
     Dosage: 1DF=1-2 TABS AS NEEDED
     Route: 048
  3. BYETTA [Suspect]
     Active Substance: EXENATIDE
     Indication: TYPE 2 DIABETES MELLITUS
     Dosage: 22SE07,22OC07,05MR08,11MR09,15AP09,?INJECTION
     Dates: start: 20070523, end: 200904
  4. ENDOCET [Concomitant]
     Active Substance: ACETAMINOPHEN\OXYCODONE HYDROCHLORIDE
     Indication: SINUS DISORDER
     Dosage: 1DF=10-650 MG TABS
     Route: 048
  5. DIAZEPAM. [Concomitant]
     Active Substance: DIAZEPAM
     Dosage: TABS
  6. AMOXICILLIN. [Concomitant]
     Active Substance: AMOXICILLIN
     Dosage: CAPS
     Route: 048

REACTIONS (1)
  - Pancreatic carcinoma metastatic [Fatal]

NARRATIVE: CASE EVENT DATE: 201106
